FAERS Safety Report 22525835 (Version 2)
Quarter: 2023Q2

REPORT INFORMATION
  Report Type: Spontaneous
  Country: IT (occurrence: IT)
  Receive Date: 20230606
  Receipt Date: 20230612
  Transmission Date: 20230721
  Serious: Yes (Hospitalization)
  Sender: FDA-Public Use
  Company Number: None

PATIENT
  Age: 72 Year
  Sex: Male

DRUGS (6)
  1. NORVASC [Suspect]
     Active Substance: AMLODIPINE BESYLATE
     Indication: Hypertension
     Dosage: 10 MILLIGRAM, QD (DAY)
     Route: 048
     Dates: end: 20230512
  2. LASIX [Concomitant]
     Active Substance: FUROSEMIDE
     Indication: Diuretic therapy
     Dosage: 25 MILLIGRAM, BID (TWICE DAILY)
     Route: 048
  3. RASILEZ [Concomitant]
     Active Substance: ALISKIREN
     Indication: Pulmonary hypertension
     Dosage: 150 MILLIGRAM, QD (DAY)
     Route: 048
  4. TOUJEO [Concomitant]
     Active Substance: INSULIN GLARGINE
     Indication: Diabetes mellitus
     Dosage: 10 INTERNATIONAL UNIT, QD (DAY)
     Route: 058
  5. CLOPIDOGREL BESILATE [Concomitant]
     Active Substance: CLOPIDOGREL BESILATE
     Indication: Thrombosis prophylaxis
     Dosage: 75 MILLIGRAM, QD (DAY)
     Route: 048
  6. FLUIMUCIL [Concomitant]
     Active Substance: ACETYLCYSTEINE
     Indication: Bronchitis
     Dosage: 600 MILLIGRAM, QD (DAY)
     Route: 048

REACTIONS (2)
  - Gravitational oedema [Not Recovered/Not Resolved]
  - Dyspnoea [Not Recovered/Not Resolved]

NARRATIVE: CASE EVENT DATE: 20230501
